FAERS Safety Report 13499917 (Version 1)
Quarter: 2017Q2

REPORT INFORMATION
  Report Type: Spontaneous
  Country: US (occurrence: US)
  Receive Date: 20170501
  Receipt Date: 20170501
  Transmission Date: 20170830
  Serious: Yes (Hospitalization, Other)
  Sender: FDA-Public Use
  Company Number: US-TEVA-764087USA

PATIENT
  Age: 68 Year
  Sex: Female

DRUGS (8)
  1. PAROXETINE. [Suspect]
     Active Substance: PAROXETINE
     Indication: DEPRESSION
     Route: 048
  2. OMEPRAZOLE. [Concomitant]
     Active Substance: OMEPRAZOLE
     Route: 048
  3. TRAZODONE [Suspect]
     Active Substance: TRAZODONE HYDROCHLORIDE
     Indication: INSOMNIA
     Route: 065
  4. RISPERIDONE. [Suspect]
     Active Substance: RISPERIDONE
     Indication: DEPRESSION
     Dosage: 2 MG; TAPERED TO 1 MG
     Route: 048
  5. RISPERIDONE. [Suspect]
     Active Substance: RISPERIDONE
     Indication: DEPRESSION
     Dosage: 3 MG; TAPERED TO 2MG
     Route: 048
  6. HYDROMORPHONE [Suspect]
     Active Substance: HYDROMORPHONE
     Route: 048
  7. AMFETAMINE, DEXAMFETAMINE [Suspect]
     Active Substance: AMPHETAMINE\DEXTROAMPHETAMINE
     Indication: DEPRESSION
     Route: 048
  8. RISPERIDONE. [Suspect]
     Active Substance: RISPERIDONE
     Indication: DEPRESSION
     Dosage: 1 MG
     Route: 048

REACTIONS (3)
  - Rhabdomyolysis [Recovered/Resolved]
  - Serotonin syndrome [Recovered/Resolved]
  - Compartment syndrome [Recovered/Resolved]
